FAERS Safety Report 9878268 (Version 1)
Quarter: 2014Q1

REPORT INFORMATION
  Report Type: Report from Study
  Country: US (occurrence: US)
  Receive Date: 20140206
  Receipt Date: 20140206
  Transmission Date: 20141002
  Serious: Yes (Death, Hospitalization)
  Sender: FDA-Public Use
  Company Number: US-ACTELION-A-NJ2014-94381

PATIENT
  Age: 60 Year
  Sex: Male

DRUGS (2)
  1. VELETRI [Suspect]
     Indication: COR PULMONALE CHRONIC
     Dosage: 39.6 UNK, UNK
     Route: 042
     Dates: start: 20130615
  2. SILDENAFIL [Concomitant]

REACTIONS (2)
  - Death [Fatal]
  - Dyspnoea [Unknown]
